FAERS Safety Report 8134694-4 (Version None)
Quarter: 2012Q1

REPORT INFORMATION
  Report Type: 
  Country: None (occurrence: None)
  Receive Date: 20120214
  Receipt Date: 20120209
  Transmission Date: 20120608
  Serious: Yes (Other)
  Sender: FDA-Public Use
  Company Number: US-PFIZER INC-2011297650

PATIENT
  Sex: Female

DRUGS (1)
  1. CHANTIX [Suspect]
     Indication: SMOKING CESSATION THERAPY
     Dosage: 1 MG, UNK
     Dates: start: 20070813, end: 20100501

REACTIONS (9)
  - LOSS OF CONSCIOUSNESS [None]
  - MENTAL DISORDER [None]
  - MOOD SWINGS [None]
  - AGGRESSION [None]
  - SKIN DISORDER [None]
  - IRRITABILITY [None]
  - ANXIETY [None]
  - SUICIDAL IDEATION [None]
  - DEPRESSION [None]
